FAERS Safety Report 12196124 (Version 1)
Quarter: 2016Q1

REPORT INFORMATION
  Report Type: Spontaneous
  Country: US (occurrence: US)
  Receive Date: 20160321
  Receipt Date: 20160321
  Transmission Date: 20160526
  Serious: Yes (Other)
  Sender: FDA-Public Use
  Company Number: US-PFIZER INC-2016148625

PATIENT
  Age: 50 Year
  Sex: Female

DRUGS (1)
  1. PREPARATION H NOS [Suspect]
     Active Substance: COCOA BUTTER\PETROLATUM\PHENYLEPHRINE HYDROCHLORIDE\PHENYLEPHRINE HYDROCHLORIDE OR MINERAL OIL
     Dates: start: 201602, end: 20160301

REACTIONS (6)
  - Haemorrhage [Unknown]
  - Skin irritation [Unknown]
  - Erythema [Unknown]
  - Infection [Unknown]
  - Drug ineffective [Unknown]
  - Pain [Unknown]
